FAERS Safety Report 10553458 (Version 1)
Quarter: 2014Q4

REPORT INFORMATION
  Report Type: Spontaneous
  Country: US (occurrence: None)
  Receive Date: 20141029
  Receipt Date: 20141029
  Transmission Date: 20150529
  Serious: Yes (Death, Hospitalization)
  Sender: FDA-Public Use
  Company Number: None

PATIENT
  Age: 67 Year
  Sex: Female
  Weight: 56.6 kg

DRUGS (2)
  1. RITUXIMAB [Suspect]
     Active Substance: RITUXIMAB
     Dates: end: 20140915
  2. BENDAMUSTINE HYDROCHLORIDE [Suspect]
     Active Substance: BENDAMUSTINE HYDROCHLORIDE
     Dates: end: 20140917

REACTIONS (12)
  - Coma [None]
  - Tachypnoea [None]
  - Confusional state [None]
  - Mental status changes [None]
  - No therapeutic response [None]
  - Cardiac arrest [None]
  - Pyrexia [None]
  - Respiratory distress [None]
  - West Nile virus test positive [None]
  - Malaise [None]
  - West Nile viral infection [None]
  - Lobar pneumonia [None]

NARRATIVE: CASE EVENT DATE: 20140923
